FAERS Safety Report 7774335-9 (Version None)
Quarter: 2011Q3

REPORT INFORMATION
  Report Type: 
  Country: None (occurrence: None)
  Receive Date: 20110923
  Receipt Date: 20110909
  Transmission Date: 20111222
  Serious: Yes (Other)
  Sender: FDA-Public Use
  Company Number: PHHY2011AR80674

PATIENT
  Sex: Female

DRUGS (1)
  1. EXFORGE [Suspect]
     Indication: HYPERTENSION
     Dosage: 160 MG AMLODIPIN/ 5 MG VALSARTAN, DAILY
     Dates: start: 20110810

REACTIONS (2)
  - FALL [None]
  - WRIST FRACTURE [None]
